FAERS Safety Report 8882628 (Version 1)
Quarter: 2012Q4

REPORT INFORMATION
  Report Type: 
  Country: AR (occurrence: AR)
  Receive Date: 20121102
  Receipt Date: 20121102
  Transmission Date: 20130627
  Serious: Yes (Hospitalization)
  Sender: FDA-Public Use
  Company Number: PHHY2012AR099669

PATIENT
  Age: 68 Year
  Sex: Male

DRUGS (2)
  1. DIOVAN [Suspect]
     Indication: HYPERTENSION
     Dosage: 160 mg, One daily
  2. INSULIN [Concomitant]

REACTIONS (2)
  - Cerebrovascular accident [Recovering/Resolving]
  - Circulatory collapse [Recovered/Resolved]
